FAERS Safety Report 4879789-3 (Version None)
Quarter: 2006Q1

REPORT INFORMATION
  Report Type: 
  Country: None (occurrence: None)
  Receive Date: 20060113
  Receipt Date: 20060109
  Transmission Date: 20060701
  Serious: Yes (Hospitalization)
  Sender: FDA-Public Use
  Company Number: IT-GLAXOSMITHKLINE-B0406249A

PATIENT
  Age: 19 Year
  Sex: Female

DRUGS (1)
  1. ZANTAC [Suspect]
     Dosage: 1G PER DAY
     Route: 042
     Dates: start: 20051205, end: 20051205

REACTIONS (2)
  - ANGIONEUROTIC OEDEMA [None]
  - URTICARIA [None]
